FAERS Safety Report 10352600 (Version 1)
Quarter: 2014Q3

REPORT INFORMATION
  Report Type: Spontaneous
  Country: US (occurrence: US)
  Receive Date: 20140730
  Receipt Date: 20140730
  Transmission Date: 20150326
  Serious: No
  Sender: FDA-Public Use
  Company Number: US-ABBVIE-13P-163-1158939-00

PATIENT
  Age: 51 Year
  Sex: Female

DRUGS (1)
  1. SYNTHROID [Suspect]
     Active Substance: LEVOTHYROXINE SODIUM
     Indication: HYPOTHYROIDISM

REACTIONS (3)
  - Palpitations [Unknown]
  - Blood thyroid stimulating hormone decreased [Unknown]
  - Alopecia [Unknown]

NARRATIVE: CASE EVENT DATE: 201310
